FAERS Safety Report 4945236-6 (Version None)
Quarter: 2006Q1

REPORT INFORMATION
  Report Type: 
  Country: None (occurrence: None)
  Receive Date: 20060315
  Receipt Date: 20060315
  Transmission Date: 20060701
  Serious: Yes (Life-Threatening)
  Sender: FDA-Public Use
  Company Number: None

PATIENT
  Sex: Male
  Weight: 97.5234 kg

DRUGS (1)
  1. PLAVIX [Suspect]
     Indication: STENT PLACEMENT
     Dosage: ONCE DAILY 75 MG Q.D. PO
     Route: 048
     Dates: start: 20050401, end: 20060211

REACTIONS (2)
  - PETECHIAE [None]
  - PURPURA [None]
